FAERS Safety Report 16961964 (Version 1)
Quarter: 2019Q4

REPORT INFORMATION
  Report Type: Spontaneous
  Country: CN (occurrence: CN)
  Receive Date: 20191025
  Receipt Date: 20191025
  Transmission Date: 20200122
  Serious: Yes (Other)
  Sender: FDA-Public Use
  Company Number: CN-ASTRAZENECA-2019SF50877

PATIENT
  Age: 71 Year
  Sex: Male

DRUGS (6)
  1. BUDESONIDE SUSPENSION [Suspect]
     Active Substance: BUDESONIDE
     Indication: ASTHMA
     Route: 055
     Dates: start: 20191008, end: 20191008
  2. TERBUTALINE SULPHATE [Suspect]
     Active Substance: TERBUTALINE SULFATE
     Indication: ASTHMA
     Route: 055
     Dates: start: 20191008, end: 20191008
  3. TERBUTALINE SULPHATE [Suspect]
     Active Substance: TERBUTALINE SULFATE
     Indication: PRODUCTIVE COUGH
     Route: 055
     Dates: start: 20191008, end: 20191008
  4. BUDESONIDE SUSPENSION [Suspect]
     Active Substance: BUDESONIDE
     Indication: PRODUCTIVE COUGH
     Route: 055
     Dates: start: 20191008, end: 20191008
  5. ACETYLCYSTEINE SOLUTION, USP [Suspect]
     Active Substance: ACETYLCYSTEINE
     Indication: PRODUCTIVE COUGH
     Route: 055
     Dates: start: 20191008, end: 20191008
  6. ACETYLCYSTEINE SOLUTION, USP [Suspect]
     Active Substance: ACETYLCYSTEINE
     Indication: ASTHMA
     Route: 055
     Dates: start: 20191008, end: 20191008

REACTIONS (4)
  - Chest discomfort [Recovering/Resolving]
  - Breath sounds abnormal [Recovering/Resolving]
  - Aphasia [Recovering/Resolving]
  - Obstructive airways disorder [Recovering/Resolving]

NARRATIVE: CASE EVENT DATE: 20191008
